FAERS Safety Report 25925439 (Version 1)
Quarter: 2025Q4

REPORT INFORMATION
  Report Type: Spontaneous
  Country: GB (occurrence: GB)
  Receive Date: 20251015
  Receipt Date: 20251015
  Transmission Date: 20260117
  Serious: Yes (Disabling, Other)
  Sender: ELI LILLY AND COMPANY
  Company Number: None

PATIENT
  Age: 26 Year
  Sex: Female
  Weight: 88 kg

DRUGS (2)
  1. MOUNJARO [Suspect]
     Active Substance: TIRZEPATIDE
     Indication: Inflammation
     Dosage: 2.5 MG, UNKNOWN
     Route: 065
     Dates: start: 20250923, end: 20250930
  2. MOUNJARO [Suspect]
     Active Substance: TIRZEPATIDE
     Indication: Inflammation
     Dosage: 2.5 MG, UNKNOWN
     Route: 065
     Dates: start: 20250923, end: 20250930

REACTIONS (2)
  - Hypoglycaemia [Recovered/Resolved]
  - Off label use [Unknown]

NARRATIVE: CASE EVENT DATE: 20250923
